FAERS Safety Report 13351410 (Version 1)
Quarter: 2017Q1

REPORT INFORMATION
  Report Type: Spontaneous
  Country: IT (occurrence: IT)
  Receive Date: 20170320
  Receipt Date: 20170320
  Transmission Date: 20170429
  Serious: Yes (Hospitalization)
  Sender: FDA-Public Use
  Company Number: IT-JNJFOC-20170319320

PATIENT
  Age: 68 Year
  Sex: Male

DRUGS (3)
  1. RIVAROXABAN [Suspect]
     Active Substance: RIVAROXABAN
     Indication: ATRIAL FIBRILLATION
     Route: 048
  2. KARVEZIDE [Concomitant]
     Active Substance: HYDROCHLOROTHIAZIDE\IRBESARTAN
     Route: 048
  3. AMIODAR [Concomitant]
     Active Substance: AMIODARONE
     Route: 048

REACTIONS (2)
  - Microcytic anaemia [Recovering/Resolving]
  - Gastrointestinal angiodysplasia [Recovering/Resolving]

NARRATIVE: CASE EVENT DATE: 20170223
